FAERS Safety Report 9053814 (Version 1)
Quarter: 2013Q1

REPORT INFORMATION
  Report Type: Spontaneous
  Country: US (occurrence: US)
  Receive Date: 20130207
  Receipt Date: 20130207
  Transmission Date: 20140127
  Serious: Yes (Hospitalization)
  Sender: FDA-Public Use
  Company Number: US-GLAXOSMITHKLINE-A1011020A

PATIENT
  Age: 62 Year
  Sex: Male

DRUGS (3)
  1. PAXIL [Suspect]
     Indication: PRODUCT USED FOR UNKNOWN INDICATION
     Route: 065
  2. XTANDI [Suspect]
     Indication: PROSTATE CANCER
     Route: 065
     Dates: start: 201209
  3. SAMARIUM 153 LEXIDRONAM [Concomitant]

REACTIONS (10)
  - Spinal cord compression [Unknown]
  - Anaemia of chronic disease [Unknown]
  - Neuropathy peripheral [Unknown]
  - Glucose tolerance impaired [Unknown]
  - Pain [Unknown]
  - Back pain [Unknown]
  - Musculoskeletal chest pain [Unknown]
  - Leukopenia [Recovered/Resolved]
  - Platelet count decreased [Recovered/Resolved]
  - Cancer pain [Unknown]
